FAERS Safety Report 5420240-2 (Version None)
Quarter: 2007Q3

REPORT INFORMATION
  Report Type: 
  Country: None (occurrence: None)
  Receive Date: 20070815
  Receipt Date: 20070730
  Transmission Date: 20080115
  Serious: Yes (Hospitalization)
  Sender: FDA-Public Use
  Company Number: 8025856

PATIENT
  Age: 22 Year
  Sex: Female

DRUGS (5)
  1. LEVETIRACETAM [Suspect]
     Indication: STATUS EPILEPTICUS
  2. PHENYTOIN [Suspect]
     Indication: STATUS EPILEPTICUS
  3. OXAZEPAM [Suspect]
     Indication: STATUS EPILEPTICUS
  4. VANCOMYCINE PCH [Concomitant]
  5. BARBITURATE [Concomitant]

REACTIONS (6)
  - ABORTION INDUCED [None]
  - DRUG EXPOSURE DURING PREGNANCY [None]
  - DRUG RESISTANCE [None]
  - ENTEROCOCCAL SEPSIS [None]
  - PORPHYRIA NON-ACUTE [None]
  - STAPHYLOCOCCAL SEPSIS [None]
